FAERS Safety Report 4425073-1 (Version None)
Quarter: 2004Q3

REPORT INFORMATION
  Report Type: 
  Country: None (occurrence: None)
  Receive Date: 20040811
  Receipt Date: 20040811
  Transmission Date: 20050211
  Serious: Yes (Disabling)
  Sender: FDA-Public Use
  Company Number: None

PATIENT
  Age: 46 Year
  Sex: Female
  Weight: 70.7611 kg

DRUGS (2)
  1. LIPITOR [Suspect]
     Indication: BLOOD CHOLESTEROL INCREASED
     Dosage: 10 MG   ONCE DAILY   ORAL
     Route: 048
     Dates: start: 20040123, end: 20040323
  2. LIPITOR [Concomitant]

REACTIONS (3)
  - ALOPECIA [None]
  - MYALGIA [None]
  - TREATMENT NONCOMPLIANCE [None]
